FAERS Safety Report 24790704 (Version 1)
Quarter: 2024Q4

REPORT INFORMATION
  Report Type: Spontaneous
  Country: GB (occurrence: GB)
  Receive Date: 20241230
  Receipt Date: 20241230
  Transmission Date: 20250115
  Serious: Yes (Hospitalization)
  Sender: MYLAN
  Company Number: GB-MYLANLABS-2024M1116873

PATIENT
  Sex: Female

DRUGS (1)
  1. CLOZARIL [Suspect]
     Active Substance: CLOZAPINE
     Indication: Schizophrenia
     Dosage: UNK (APPROXIMATE STOP DATE REPORTED AS 17-DEC-2024)
     Route: 048
     Dates: start: 20230307, end: 202412

REACTIONS (3)
  - Hospitalisation [Unknown]
  - Confusional state [Unknown]
  - Treatment noncompliance [Unknown]
